FAERS Safety Report 4342055-9 (Version None)
Quarter: 2004Q1

REPORT INFORMATION
  Report Type: 
  Country: None (occurrence: None)
  Receive Date: 20040329
  Receipt Date: 20040120
  Transmission Date: 20041129
  Serious: No
  Sender: FDA-Public Use
  Company Number: 04P-163-0247666-00

PATIENT
  Age: 59 Year
  Sex: Female
  Weight: 57.6068 kg

DRUGS (9)
  1. HUMIRA [Suspect]
     Indication: RHEUMATOID ARTHRITIS
     Dosage: 40 MG, 1 IN 2 WK, SUBCUTANEOUS
     Route: 058
     Dates: start: 20031003
  2. METHOTREXATE SODIUM [Concomitant]
  3. PREDNISONE [Concomitant]
  4. NAPROXEN [Concomitant]
  5. NOVOTHYRAL [Concomitant]
  6. CONJUGATED ESTROGEN [Concomitant]
  7. MULTI-VITAMINS [Concomitant]
  8. BIOTIN [Concomitant]
  9. FOLIC ACID [Concomitant]

REACTIONS (4)
  - INJECTION SITE ERYTHEMA [None]
  - INJECTION SITE PRURITUS [None]
  - NASOPHARYNGITIS [None]
  - SINUSITIS [None]
